FAERS Safety Report 7471866-6 (Version None)
Quarter: 2011Q2

REPORT INFORMATION
  Report Type: 
  Country: None (occurrence: None)
  Receive Date: 20110511
  Receipt Date: 20100611
  Transmission Date: 20111010
  Serious: No
  Sender: FDA-Public Use
  Company Number: A0866383A

PATIENT
  Sex: Female

DRUGS (2)
  1. TYKERB [Suspect]
     Dosage: 1500MG PER DAY
     Route: 065
     Dates: start: 20100501
  2. FEMARA [Concomitant]
     Dates: start: 20100501

REACTIONS (5)
  - MUCOUS MEMBRANE DISORDER [None]
  - PAIN [None]
  - HYPERAESTHESIA [None]
  - SKIN CHAPPED [None]
  - NASAL DRYNESS [None]
